FAERS Safety Report 16855515 (Version 1)
Quarter: 2019Q4

REPORT INFORMATION
  Report Type: Spontaneous
  Country: US (occurrence: US)
  Receive Date: 20190926
  Receipt Date: 20190926
  Transmission Date: 20200122
  Serious: Yes (Hospitalization)
  Sender: FDA-Public Use
  Company Number: None

PATIENT
  Age: 26 Year
  Sex: Female
  Weight: 60.75 kg

DRUGS (5)
  1. AIMOVIG [Suspect]
     Active Substance: ERENUMAB-AOOE
     Indication: MIGRAINE
     Dosage: ?          QUANTITY:1 INJECTION(S);OTHER FREQUENCY:ONCE A MONTH;?
     Route: 030
     Dates: start: 20190924
  2. TOPAMAX [Concomitant]
     Active Substance: TOPIRAMATE
  3. TIZANADINE [Concomitant]
     Active Substance: TIZANIDINE
  4. PERCOCET [Concomitant]
     Active Substance: ACETAMINOPHEN\OXYCODONE HYDROCHLORIDE
  5. NEPROXIN [Concomitant]

REACTIONS (8)
  - Asthenia [None]
  - Hot flush [None]
  - Swelling [None]
  - Nausea [None]
  - Vomiting [None]
  - Muscle spasms [None]
  - Diarrhoea [None]
  - Mobility decreased [None]

NARRATIVE: CASE EVENT DATE: 20190924
